FAERS Safety Report 8783416 (Version 1)
Quarter: 2012Q4

REPORT INFORMATION
  Report Type: 
  Country: US (occurrence: US)
  Receive Date: 20120913
  Receipt Date: 20120913
  Transmission Date: 20130627
  Serious: No
  Sender: FDA-Public Use
  Company Number: US-PFIZER INC-2012221109

PATIENT
  Sex: Female

DRUGS (12)
  1. NEURONTIN [Suspect]
     Indication: FACIAL NEURALGIA
     Dosage: 300 mg, 1x/day
  2. NEURONTIN [Suspect]
     Dosage: 100 mg, 1x/day
     Dates: start: 20120819
  3. VIIBRYD [Suspect]
     Indication: DEPRESSION
     Dosage: 10 mg, 1x/day
     Route: 048
     Dates: start: 20120727, end: 20120802
  4. VIIBRYD [Suspect]
     Dosage: 20 mg, 1x/day
     Route: 048
     Dates: start: 20120803, end: 20120809
  5. VIIBRYD [Suspect]
     Dosage: 40 mg, 1x/day
     Route: 048
     Dates: start: 20120810
  6. KLONOPIN [Concomitant]
     Indication: RESTLESS LEGS SYNDROME
     Dosage: 0.5 mg, UNK
  7. NORVASC [Concomitant]
     Indication: HYPERTENSION
     Dosage: UNK
  8. DILTIAZEM [Concomitant]
     Indication: HYPERTENSION
     Dosage: UNK
  9. LOSARTAN POTASSIUM W/HYDROCHLOROTHIAZIDE [Concomitant]
     Indication: HYPERTENSION
     Dosage: 100/25mg
     Route: 048
  10. FENOFIBRATE [Concomitant]
     Indication: BLOOD CHOLESTEROL INCREASED
     Dosage: UNK
  11. DULERA [Concomitant]
     Indication: ASTHMA
     Dosage: UNK
  12. CUMADIN [Concomitant]
     Indication: THROMBOSIS
     Dosage: UNK

REACTIONS (5)
  - Insomnia [Recovered/Resolved]
  - Crying [Not Recovered/Not Resolved]
  - Nightmare [Not Recovered/Not Resolved]
  - Irritability [Not Recovered/Not Resolved]
  - Dizziness [Not Recovered/Not Resolved]
